FAERS Safety Report 8076581-6 (Version None)
Quarter: 2012Q1

REPORT INFORMATION
  Report Type: 
  Country: None (occurrence: None)
  Receive Date: 20120127
  Receipt Date: 20111129
  Transmission Date: 20120608
  Serious: Yes (Hospitalization)
  Sender: FDA-Public Use
  Company Number: CA-JNJFOC-20120109238

PATIENT
  Sex: Female
  Weight: 52.4 kg

DRUGS (3)
  1. REMICADE [Suspect]
     Indication: CROHN'S DISEASE
     Route: 042
  2. IMURAN [Concomitant]
     Route: 065
  3. NEXIUM [Concomitant]
     Route: 065

REACTIONS (1)
  - MAMMOPLASTY [None]
